FAERS Safety Report 7106805-0 (Version None)
Quarter: 2010Q4

REPORT INFORMATION
  Report Type: 
  Country: None (occurrence: None)
  Receive Date: 20101116
  Receipt Date: 20100826
  Transmission Date: 20110411
  Serious: No
  Sender: FDA-Public Use
  Company Number: US-ABBOTT-10P-163-0666407-00

PATIENT
  Sex: Male
  Weight: 136.2 kg

DRUGS (5)
  1. SIMCOR [Suspect]
     Indication: DYSLIPIDAEMIA
     Dosage: 500/20MG DAILY AT 5PM
     Route: 048
  2. ONGLYZA [Concomitant]
     Indication: PRODUCT USED FOR UNKNOWN INDICATION
     Route: 048
  3. ASPIRIN [Concomitant]
     Indication: PRODUCT USED FOR UNKNOWN INDICATION
     Route: 048
  4. PENICILLIN [Concomitant]
     Indication: TOOTHACHE
     Route: 048
  5. PERCOCET [Concomitant]
     Indication: TOOTHACHE
     Route: 048

REACTIONS (2)
  - PRURITUS [None]
  - TOOTHACHE [None]
